FAERS Safety Report 20083637 (Version 5)
Quarter: 2022Q1

REPORT INFORMATION
  Report Type: Spontaneous
  Country: US (occurrence: US)
  Receive Date: 20211118
  Receipt Date: 20220215
  Transmission Date: 20220423
  Serious: No
  Sender: FDA-Public Use
  Company Number: US-LUPIN PHARMACEUTICALS INC.-2021-22452

PATIENT
  Sex: Female

DRUGS (3)
  1. ALBUTEROL SULFATE [Suspect]
     Active Substance: ALBUTEROL SULFATE
     Indication: Product used for unknown indication
     Dosage: 2 DOSAGE FORM, QID (2 PUFFS EVERY 4 TIMES A DAY AS NEEDED)
  2. ALBUTEROL SULFATE [Suspect]
     Active Substance: ALBUTEROL SULFATE
     Dosage: 2 DOSAGE FORM, QID (2 PUFFS EVERY 4 TIMES A DAY AS NEEDED)
  3. ALBUTEROL SULFATE [Suspect]
     Active Substance: ALBUTEROL SULFATE
     Dosage: 2 DOSAGE FORM, QID (2 PUFFS EVERY 4 TIMES A DAY AS NEEDED)

REACTIONS (7)
  - Device ineffective [Unknown]
  - Product use complaint [Unknown]
  - Product substitution issue [Unknown]
  - Product quality issue [Unknown]
  - Device malfunction [Unknown]
  - Device occlusion [Unknown]
  - No adverse event [Unknown]
